FAERS Safety Report 14521376 (Version 1)
Quarter: 2018Q1

REPORT INFORMATION
  Report Type: Spontaneous
  Country: GB (occurrence: GB)
  Receive Date: 20180212
  Receipt Date: 20180212
  Transmission Date: 20180509
  Serious: Yes (Hospitalization)
  Sender: FDA-Public Use
  Company Number: GB-BAUSCH-BL-2018-002929

PATIENT
  Age: 47 Year
  Sex: Female

DRUGS (7)
  1. ACICLOVIR [Suspect]
     Active Substance: ACYCLOVIR
     Indication: VARICELLA ZOSTER VIRUS INFECTION
     Dosage: 25 MG/ML CONCENTRATE FOR SOLUTION FOR INFUSION
     Route: 042
  2. AZATHIOPRINE. [Concomitant]
     Active Substance: AZATHIOPRINE
     Indication: GLOMERULONEPHRITIS
  3. AZATHIOPRINE. [Concomitant]
     Active Substance: AZATHIOPRINE
     Indication: END STAGE RENAL DISEASE
  4. PREDNISOLONE. [Concomitant]
     Active Substance: PREDNISOLONE
     Indication: GLOMERULONEPHRITIS
  5. PREDNISOLONE. [Concomitant]
     Active Substance: PREDNISOLONE
     Indication: ANTINEUTROPHIL CYTOPLASMIC ANTIBODY POSITIVE
  6. PREDNISOLONE. [Concomitant]
     Active Substance: PREDNISOLONE
     Indication: END STAGE RENAL DISEASE
  7. AZATHIOPRINE. [Concomitant]
     Active Substance: AZATHIOPRINE
     Indication: ANTINEUTROPHIL CYTOPLASMIC ANTIBODY POSITIVE

REACTIONS (1)
  - Leukoencephalopathy [Recovered/Resolved]
